APPROVED DRUG PRODUCT: SODIUM IODIDE I 123
Active Ingredient: SODIUM IODIDE I-123
Strength: 100uCi
Dosage Form/Route: CAPSULE;ORAL
Application: N017630 | Product #001
Applicant: GE HEALTHCARE
Approved: Approved Prior to Jan 1, 1982 | RLD: No | RS: No | Type: DISCN